FAERS Safety Report 5057937-2 (Version None)
Quarter: 2006Q3

REPORT INFORMATION
  Report Type: 
  Country: None (occurrence: None)
  Receive Date: 20060721
  Receipt Date: 20060410
  Transmission Date: 20061208
  Serious: No
  Sender: FDA-Public Use
  Company Number: US-GLAXOSMITHKLINE-A0601182A

PATIENT
  Age: 60 Year
  Sex: Male

DRUGS (7)
  1. AVANDIA [Suspect]
     Dosage: 2MG TWICE PER DAY
     Route: 048
     Dates: start: 20060408
  2. METFORMIN [Suspect]
     Dosage: 500MG TWICE PER DAY
     Dates: start: 20060408
  3. METFORMIN [Concomitant]
  4. NEURONTIN [Concomitant]
  5. ROBAXIN [Concomitant]
  6. PLAVIX [Concomitant]
  7. ZOCOR [Concomitant]

REACTIONS (2)
  - DIZZINESS [None]
  - NAUSEA [None]
